FAERS Safety Report 9472883 (Version 2)
Quarter: 2013Q3

REPORT INFORMATION
  Report Type: Report from Study
  Country: US (occurrence: US)
  Receive Date: 20130823
  Receipt Date: 20130910
  Transmission Date: 20140515
  Serious: Yes (Hospitalization)
  Sender: FDA-Public Use
  Company Number: US-UCBSA-095866

PATIENT
  Age: 64 Year
  Sex: Female
  Weight: 80.9 kg

DRUGS (2)
  1. CERTOLIZUMAB PEGOL [Suspect]
     Indication: RHEUMATOID ARTHRITIS
     Route: 058
     Dates: end: 20130819
  2. METHOTREXATE [Concomitant]
     Indication: RHEUMATOID ARTHRITIS

REACTIONS (4)
  - Interstitial lung disease [Recovering/Resolving]
  - Gastritis erosive [Recovering/Resolving]
  - Hiatus hernia [Not Recovered/Not Resolved]
  - Diverticulum [Unknown]
